FAERS Safety Report 16966542 (Version 5)
Quarter: 2019Q4

REPORT INFORMATION
  Report Type: Spontaneous
  Country: JP (occurrence: JP)
  Receive Date: 20191028
  Receipt Date: 20191122
  Transmission Date: 20200122
  Serious: Yes (Hospitalization, Other)
  Sender: FDA-Public Use
  Company Number: JP-PFIZER INC-2019459578

PATIENT
  Age: 44 Year
  Sex: Male

DRUGS (4)
  1. LORAZEPAM. [Concomitant]
     Active Substance: LORAZEPAM
     Indication: MENTAL DISORDER
     Dosage: UNK
     Dates: start: 201904
  2. SULPIRIDE [Concomitant]
     Active Substance: SULPIRIDE
     Indication: MENTAL DISORDER
     Dosage: UNK
     Dates: start: 201904
  3. CHAMPIX [Suspect]
     Active Substance: VARENICLINE TARTRATE
     Indication: SMOKING CESSATION THERAPY
     Dosage: 2 MG, DAILY
     Route: 048
     Dates: start: 20191011, end: 20191022
  4. VALPROATE [Concomitant]
     Active Substance: VALPROIC ACID
     Indication: MENTAL DISORDER
     Dosage: UNK
     Dates: start: 201904

REACTIONS (7)
  - Epilepsy [Recovered/Resolved]
  - Generalised tonic-clonic seizure [Unknown]
  - Pallor [Unknown]
  - Foaming at mouth [Unknown]
  - Loss of consciousness [Recovered/Resolved]
  - Mediastinum neoplasm [Unknown]
  - Status epilepticus [Recovered/Resolved]

NARRATIVE: CASE EVENT DATE: 20191022
